FAERS Safety Report 9959692 (Version 1)
Quarter: 2014Q1

REPORT INFORMATION
  Report Type: Spontaneous
  Country: CN (occurrence: None)
  Receive Date: 20140227
  Receipt Date: 20140227
  Transmission Date: 20141002
  Serious: Yes (Other)
  Sender: FDA-Public Use
  Company Number: B0972091A

PATIENT
  Age: 19 Year
  Sex: Male

DRUGS (6)
  1. LAMIVUDINE-HIV [Suspect]
     Indication: ANTIRETROVIRAL THERAPY
     Dates: start: 201109
  2. STAVUDINE [Suspect]
     Indication: PRODUCT USED FOR UNKNOWN INDICATION
     Dates: start: 201109
  3. EFAVIRENZ [Suspect]
     Indication: ANTIRETROVIRAL THERAPY
     Dates: start: 201109
  4. AMPHOTERICIN [Concomitant]
  5. FLUCYTOSINE [Concomitant]
  6. FLUCONAZOLE [Concomitant]

REACTIONS (7)
  - Meningitis cryptococcal [None]
  - Headache [None]
  - Dizziness [None]
  - Immune reconstitution inflammatory syndrome [None]
  - Cough [None]
  - Lymphadenopathy mediastinal [None]
  - Neck mass [None]
